FAERS Safety Report 15690777 (Version 1)
Quarter: 2018Q4

REPORT INFORMATION
  Report Type: Spontaneous
  Country: US (occurrence: US)
  Receive Date: 20181205
  Receipt Date: 20181205
  Transmission Date: 20190205
  Serious: Yes (Other)
  Sender: FDA-Public Use
  Company Number: US-THERAVANCE-2018-000061

PATIENT

DRUGS (3)
  1. VIBATIV [Suspect]
     Active Substance: TELAVANCIN HYDROCHLORIDE
     Indication: OSTEOMYELITIS BACTERIAL
     Dosage: 750 MG, QD
     Dates: start: 20180611
  2. VIBATIV [Suspect]
     Active Substance: TELAVANCIN HYDROCHLORIDE
     Dosage: 550 MILLIGRAM, QD
     Dates: start: 20180629, end: 20180701
  3. DALBAVANCIN. [Concomitant]
     Active Substance: DALBAVANCIN
     Dosage: UNK
     Dates: start: 20180702

REACTIONS (3)
  - Off label use [Unknown]
  - Renal failure [Recovering/Resolving]
  - Blood creatinine increased [Recovering/Resolving]

NARRATIVE: CASE EVENT DATE: 20180311
